FAERS Safety Report 23831909 (Version 2)
Quarter: 2025Q1

REPORT INFORMATION
  Report Type: Spontaneous
  Country: US (occurrence: US)
  Receive Date: 20240508
  Receipt Date: 20250317
  Transmission Date: 20250409
  Serious: Yes (Hospitalization, Other)
  Sender: DR REDDYS
  Company Number: None

PATIENT
  Age: 20 Year
  Sex: Female

DRUGS (28)
  1. TOPIRAMATE [Suspect]
     Active Substance: TOPIRAMATE
     Indication: Borderline personality disorder
  2. TOPIRAMATE [Suspect]
     Active Substance: TOPIRAMATE
     Indication: Post-traumatic stress disorder
  3. TOPIRAMATE [Suspect]
     Active Substance: TOPIRAMATE
     Indication: Anxiety disorder
  4. TOPIRAMATE [Suspect]
     Active Substance: TOPIRAMATE
     Indication: Major depression
  5. LAMOTRIGINE [Suspect]
     Active Substance: LAMOTRIGINE
     Indication: Major depression
  6. LAMOTRIGINE [Suspect]
     Active Substance: LAMOTRIGINE
     Indication: Anxiety disorder
  7. LAMOTRIGINE [Suspect]
     Active Substance: LAMOTRIGINE
     Indication: Borderline personality disorder
  8. LAMOTRIGINE [Suspect]
     Active Substance: LAMOTRIGINE
     Indication: Post-traumatic stress disorder
  9. CLOZAPINE [Suspect]
     Active Substance: CLOZAPINE
     Indication: Post-traumatic stress disorder
     Dosage: DAILY
  10. CLOZAPINE [Suspect]
     Active Substance: CLOZAPINE
     Indication: Borderline personality disorder
  11. CLOZAPINE [Suspect]
     Active Substance: CLOZAPINE
     Indication: Major depression
  12. CLOZAPINE [Suspect]
     Active Substance: CLOZAPINE
     Indication: Anxiety disorder
  13. CHLORPROMAZINE [Suspect]
     Active Substance: CHLORPROMAZINE
     Indication: Major depression
     Dosage: THREE TIMES A DAY
  14. CHLORPROMAZINE [Suspect]
     Active Substance: CHLORPROMAZINE
     Indication: Anxiety disorder
  15. CHLORPROMAZINE [Suspect]
     Active Substance: CHLORPROMAZINE
     Indication: Borderline personality disorder
  16. CHLORPROMAZINE [Suspect]
     Active Substance: CHLORPROMAZINE
     Indication: Post-traumatic stress disorder
  17. BUPROPION [Suspect]
     Active Substance: BUPROPION
     Indication: Post-traumatic stress disorder
  18. BUPROPION [Suspect]
     Active Substance: BUPROPION
     Indication: Anxiety disorder
  19. BUPROPION [Suspect]
     Active Substance: BUPROPION
     Indication: Borderline personality disorder
  20. BUPROPION [Suspect]
     Active Substance: BUPROPION
     Indication: Major depression
  21. CITALOPRAM [Concomitant]
     Active Substance: CITALOPRAM
     Indication: Major depression
  22. CITALOPRAM [Concomitant]
     Active Substance: CITALOPRAM
     Indication: Anxiety disorder
  23. CITALOPRAM [Concomitant]
     Active Substance: CITALOPRAM
     Indication: Borderline personality disorder
  24. CITALOPRAM [Concomitant]
     Active Substance: CITALOPRAM
     Indication: Post-traumatic stress disorder
  25. LITHIUM [Concomitant]
     Active Substance: LITHIUM
     Indication: Borderline personality disorder
  26. LITHIUM [Concomitant]
     Active Substance: LITHIUM
     Indication: Post-traumatic stress disorder
  27. LITHIUM [Concomitant]
     Active Substance: LITHIUM
     Indication: Major depression
  28. LITHIUM [Concomitant]
     Active Substance: LITHIUM
     Indication: Anxiety disorder

REACTIONS (5)
  - Agranulocytosis [Recovered/Resolved]
  - Neutropenic sepsis [Recovered/Resolved]
  - Thrombocytosis [Recovered/Resolved]
  - Drug interaction [Recovered/Resolved]
  - Anaemia [Recovered/Resolved]
